FAERS Safety Report 8160070-4 (Version None)
Quarter: 2012Q1

REPORT INFORMATION
  Report Type: 
  Country: None (occurrence: None)
  Receive Date: 20120223
  Receipt Date: 20120221
  Transmission Date: 20120608
  Serious: Yes (Other)
  Sender: FDA-Public Use
  Company Number: GXKR2012DE000894

PATIENT

DRUGS (6)
  1. VITAMIN B-12 [Concomitant]
     Indication: VOMITING IN PREGNANCY
     Dosage: ON DEMAND (GW 9 TO 12)
     Route: 048
  2. FOLIC ACID [Concomitant]
     Indication: PROPHYLAXIS OF NEURAL TUBE DEFECT
     Dosage: ALSO PRECONCEPTIONAL, DOSAGE UNKNOWN
     Route: 048
     Dates: end: 20110929
  3. MCP ^ALIUD PHARMA^ [Concomitant]
     Indication: VOMITING IN PREGNANCY
     Dosage: ON DEMAND (GW 9 TO 12)
     Route: 048
  4. VENLAFAXINE [Suspect]
     Indication: ANXIETY DISORDER
     Dosage: 187.5 [MG/D ]
     Route: 048
     Dates: start: 20110218, end: 20110929
  5. PYRIDOXINE HCL [Concomitant]
     Indication: VOMITING IN PREGNANCY
     Dosage: ON DEMAND (GW 9 TO 12)
     Route: 048
  6. THIAMINE HCL [Concomitant]
     Indication: VOMITING IN PREGNANCY
     Dosage: ON DEMAND (GW 9 TO 12)
     Route: 048

REACTIONS (2)
  - PREMATURE SEPARATION OF PLACENTA [None]
  - STILLBIRTH [None]
